FAERS Safety Report 17888594 (Version 2)
Quarter: 2020Q2

REPORT INFORMATION
  Report Type: Report from Study
  Country: CA (occurrence: CA)
  Receive Date: 20200612
  Receipt Date: 20200619
  Transmission Date: 20200714
  Serious: Yes (Hospitalization)
  Sender: FDA-Public Use
  Company Number: CA-EISAI MEDICAL RESEARCH-EC-2020-075830

PATIENT
  Age: 66 Year
  Sex: Male

DRUGS (14)
  1. LENVIMA [Suspect]
     Active Substance: LENVATINIB
     Indication: HEPATOCELLULAR CARCINOMA
     Route: 048
     Dates: start: 20200412
  2. NITROGLYCERIN. [Concomitant]
     Active Substance: NITROGLYCERIN
  3. PERINDOPRIL [Concomitant]
     Active Substance: PERINDOPRIL
  4. METFORMIN [Concomitant]
     Active Substance: METFORMIN HYDROCHLORIDE
  5. ATORVASTATIN [Concomitant]
     Active Substance: ATORVASTATIN
  6. FUROSEMIDE. [Concomitant]
     Active Substance: FUROSEMIDE
  7. OXYCODONE [Concomitant]
     Active Substance: OXYCODONE
  8. WARFARIN [Concomitant]
     Active Substance: WARFARIN
  9. BISOPROLOL [Concomitant]
     Active Substance: BISOPROLOL
  10. DUTASTERIDE. [Concomitant]
     Active Substance: DUTASTERIDE
  11. INSULIN [Concomitant]
     Active Substance: INSULIN NOS
  12. DIGOXIN. [Concomitant]
     Active Substance: DIGOXIN
  13. OMEPRAZOLE. [Concomitant]
     Active Substance: OMEPRAZOLE
  14. TAMSULOSIN [Concomitant]
     Active Substance: TAMSULOSIN

REACTIONS (4)
  - Vomiting [Recovered/Resolved]
  - Fatigue [Unknown]
  - Decreased appetite [Recovered/Resolved]
  - Diarrhoea [Unknown]

NARRATIVE: CASE EVENT DATE: 2020
